FAERS Safety Report 4393963-4 (Version None)
Quarter: 2004Q3

REPORT INFORMATION
  Report Type: 
  Country: None (occurrence: None)
  Receive Date: 20040701
  Receipt Date: 20040504
  Transmission Date: 20050211
  Serious: Yes (Other)
  Sender: FDA-Public Use
  Company Number: 2004AP02534

PATIENT
  Age: 24 Year
  Sex: Male

DRUGS (8)
  1. SEROQUEL [Suspect]
     Dosage: 1200 MG DAILY PO
     Route: 048
  2. SEROQUEL [Suspect]
  3. VENLAFAXINE HCL [Suspect]
  4. VENLAFAXINE HCL [Suspect]
  5. CARBAMAZEPINE [Suspect]
  6. CARBAMAZEPINE [Suspect]
  7. MIRTAZAPINE [Suspect]
  8. MIRTAZAPINE [Suspect]

REACTIONS (2)
  - LEUKOPENIA [None]
  - NEUTROPHIL COUNT DECREASED [None]
